FAERS Safety Report 13300843 (Version 1)
Quarter: 2017Q1

REPORT INFORMATION
  Report Type: Spontaneous
  Country: LB (occurrence: LB)
  Receive Date: 20170307
  Receipt Date: 20170307
  Transmission Date: 20170428
  Serious: Yes (Death, Hospitalization, Other)
  Sender: FDA-Public Use
  Company Number: LB-ABBVIE-17K-093-1897360-00

PATIENT
  Age: 23 Year
  Sex: Female
  Weight: 49 kg

DRUGS (2)
  1. HUMIRA [Suspect]
     Active Substance: ADALIMUMAB
     Indication: CROHN^S DISEASE
     Route: 058
     Dates: start: 2015, end: 2016
  2. HUMIRA [Suspect]
     Active Substance: ADALIMUMAB
     Route: 058
     Dates: start: 2016

REACTIONS (10)
  - Cardiac arrest [Fatal]
  - Abdominal pain [Fatal]
  - Oxygen saturation decreased [Fatal]
  - Cardiac perforation [Fatal]
  - Cyanosis [Fatal]
  - Myocardial ischaemia [Fatal]
  - Pulmonary embolism [Fatal]
  - Vomiting [Fatal]
  - Hypotension [Fatal]
  - Septic shock [Unknown]

NARRATIVE: CASE EVENT DATE: 20170301
